FAERS Safety Report 23497622 (Version 2)
Quarter: 2024Q1

REPORT INFORMATION
  Report Type: Spontaneous
  Country: FR (occurrence: FR)
  Receive Date: 20240208
  Receipt Date: 20240223
  Transmission Date: 20240409
  Serious: Yes (Death, Life-Threatening)
  Sender: FDA-Public Use
  Company Number: None

PATIENT
  Age: 62 Year
  Sex: Male

DRUGS (16)
  1. DICLOFENAC [Suspect]
     Active Substance: DICLOFENAC
     Indication: Back pain
     Route: 048
     Dates: start: 20231013
  2. METFORMIN HYDROCHLORIDE\SAXAGLIPTIN [Concomitant]
     Active Substance: METFORMIN HYDROCHLORIDE\SAXAGLIPTIN
     Indication: Product used for unknown indication
     Dosage: 2.5 MG/1000 MG, FILM-COATED TABLET
     Route: 048
  3. TICAGRELOR [Suspect]
     Active Substance: TICAGRELOR
     Indication: Infarction
     Dosage: TIME INTERVAL: TOTAL
     Route: 048
     Dates: start: 20231027, end: 20231027
  4. ARIXTRA [Suspect]
     Active Substance: FONDAPARINUX SODIUM
     Indication: Infarction
     Dosage: TIME INTERVAL: TOTAL: TOTAL
     Route: 058
     Dates: start: 20231027
  5. HEPARIN SODIUM [Interacting]
     Active Substance: HEPARIN SODIUM
     Indication: Infarction
     Route: 042
     Dates: start: 20231027
  6. HEPARIN SODIUM [Interacting]
     Active Substance: HEPARIN SODIUM
     Indication: Infarction
     Route: 042
     Dates: start: 20231027
  7. ROSUVASTATIN [Concomitant]
     Active Substance: ROSUVASTATIN
     Indication: Product used for unknown indication
     Dosage: ROSUVASTATINE
     Route: 048
  8. HYDROCHLOROTHIAZIDE [Concomitant]
     Active Substance: HYDROCHLOROTHIAZIDE
     Indication: Product used for unknown indication
     Route: 048
  9. NITRENDIPINE [Concomitant]
     Active Substance: NITRENDIPINE
     Indication: Product used for unknown indication
     Route: 048
  10. DAPAGLIFLOZIN [Concomitant]
     Active Substance: DAPAGLIFLOZIN
     Indication: Product used for unknown indication
     Route: 048
  11. KARDEGIC [Suspect]
     Active Substance: ASPIRIN DL-LYSINE
     Indication: Cardiovascular event prophylaxis
     Dosage: 75 MG, POWDER FOR ORAL SOLUTION IN SACHET-DOSE
     Route: 048
     Dates: start: 2023
  12. CANDESARTAN CILEXETIL [Concomitant]
     Active Substance: CANDESARTAN CILEXETIL
     Indication: Product used for unknown indication
     Route: 048
  13. NAPROXEN [Suspect]
     Active Substance: NAPROXEN
     Indication: Back pain
     Route: 048
     Dates: start: 20231013
  14. METHYLPREDNISOLONE [Suspect]
     Active Substance: METHYLPREDNISOLONE
     Indication: Back pain
     Route: 048
     Dates: start: 20231013, end: 20231016
  15. METHYLPREDNISOLONE [Suspect]
     Active Substance: METHYLPREDNISOLONE
     Indication: Back pain
     Route: 048
     Dates: start: 20231017, end: 20231021
  16. METHYLPREDNISOLONE [Suspect]
     Active Substance: METHYLPREDNISOLONE
     Indication: Back pain
     Route: 048
     Dates: start: 20231022, end: 20231026

REACTIONS (3)
  - Shock haemorrhagic [Fatal]
  - Gastroduodenal ulcer [Fatal]
  - Drug interaction [Fatal]

NARRATIVE: CASE EVENT DATE: 20231027
